FAERS Safety Report 23126973 (Version 1)
Quarter: 2023Q4

REPORT INFORMATION
  Report Type: Spontaneous
  Country: DE (occurrence: DE)
  Receive Date: 20231030
  Receipt Date: 20231030
  Transmission Date: 20240109
  Serious: Yes (Hospitalization, Other)
  Sender: FDA-Public Use
  Company Number: DE-TAKEDA-DE201936917

PATIENT
  Age: 25 Year
  Sex: Female
  Weight: 63 kg

DRUGS (8)
  1. FLUDROCORTISONE [Suspect]
     Active Substance: FLUDROCORTISONE
     Indication: Hypoaldosteronism
     Dosage: 0.1 MG, QD
     Route: 048
     Dates: start: 201906, end: 20190926
  2. FLUDROCORTISONE [Suspect]
     Active Substance: FLUDROCORTISONE
     Dosage: 0.15 MG, QD
     Route: 048
     Dates: start: 20190927, end: 202001
  3. FLUDROCORTISONE [Suspect]
     Active Substance: FLUDROCORTISONE
     Dosage: 0.2 MG, QD
     Route: 048
     Dates: start: 202001
  4. ESOMEPRAZOLE [Suspect]
     Active Substance: ESOMEPRAZOLE
     Indication: Gastrointestinal disorder
     Dosage: 20 MG
     Route: 048
     Dates: start: 201909, end: 201909
  5. FOLIC ACID\VITAMINS [Suspect]
     Active Substance: FOLIC ACID\VITAMINS
     Indication: Alopecia
     Dosage: 3.6 GRAM, QD
     Route: 048
     Dates: start: 202001
  6. HYDROCORTISONE ACETATE [Suspect]
     Active Substance: HYDROCORTISONE ACETATE
     Indication: Adrenal insufficiency
     Dosage: 20 MG, QD
     Route: 048
     Dates: start: 201510, end: 20200225
  7. HYDROCORTISONE ACETATE [Suspect]
     Active Substance: HYDROCORTISONE ACETATE
     Dosage: 25 MG, QD
     Route: 048
     Dates: start: 20200226, end: 20200409
  8. CYANOCOBALAMIN\PYRIDOXINE HYDROCHLORIDE\THIAMINE [Suspect]
     Active Substance: CYANOCOBALAMIN\PYRIDOXINE HYDROCHLORIDE\THIAMINE
     Indication: Hyperemesis gravidarum
     Dosage: UNK UNK, QD
     Route: 048
     Dates: start: 201910

REACTIONS (2)
  - Hyperemesis gravidarum [Recovered/Resolved]
  - Maternal exposure during pregnancy [Unknown]

NARRATIVE: CASE EVENT DATE: 20190926
